FAERS Safety Report 5323628-3 (Version None)
Quarter: 2007Q2

REPORT INFORMATION
  Report Type: 
  Country: None (occurrence: None)
  Receive Date: 20070507
  Receipt Date: 20070430
  Transmission Date: 20071010
  Serious: Yes (Other)
  Sender: FDA-Public Use
  Company Number: 2007BI004559

PATIENT
  Age: 58 Year
  Sex: Female

DRUGS (1)
  1. AVONEX [Suspect]
     Indication: MULTIPLE SCLEROSIS
     Dosage: 30 UG; QW; IM
     Route: 030
     Dates: start: 20070116, end: 20070101

REACTIONS (3)
  - ALLERGIC GRANULOMATOUS ANGIITIS [None]
  - DYSPNOEA [None]
  - OXYGEN SATURATION DECREASED [None]
